FAERS Safety Report 10740234 (Version 1)
Quarter: 2015Q1

REPORT INFORMATION
  Report Type: Spontaneous
  Country: US (occurrence: US)
  Receive Date: 20150127
  Receipt Date: 20150127
  Transmission Date: 20150721
  Serious: Yes (Other)
  Sender: FDA-Public Use
  Company Number: US-AMGEN-USASP2015005757

PATIENT
  Age: 61 Year
  Sex: Female

DRUGS (1)
  1. ENBREL [Suspect]
     Active Substance: ETANERCEPT
     Indication: RHEUMATOID ARTHRITIS
     Dosage: 50 MG, QWK
     Route: 065
     Dates: start: 201411, end: 20150116

REACTIONS (7)
  - Erythema [Recovered/Resolved]
  - Eye swelling [Recovered/Resolved]
  - Swelling face [Recovered/Resolved]
  - Rash [Recovering/Resolving]
  - Throat tightness [Recovered/Resolved]
  - Hypoaesthesia oral [Recovered/Resolved]
  - Injection related reaction [Recovering/Resolving]

NARRATIVE: CASE EVENT DATE: 20150116
